FAERS Safety Report 5479942-4 (Version None)
Quarter: 2007Q4

REPORT INFORMATION
  Report Type: 
  Country: None (occurrence: None)
  Receive Date: 20071008
  Receipt Date: 20070921
  Transmission Date: 20080405
  Serious: No
  Sender: FDA-Public Use
  Company Number: US-BOEHRINGER INGELHEIM PHARMACEUTICALS, INC.-2007-BP-21484BP

PATIENT
  Age: 42 Year
  Sex: Male

DRUGS (3)
  1. MIRAPEX [Suspect]
     Indication: PERIODIC LIMB MOVEMENT DISORDER
     Route: 048
     Dates: start: 20070917
  2. NEXIUM [Concomitant]
  3. FOSAMAX [Concomitant]

REACTIONS (1)
  - INSOMNIA [None]
